FAERS Safety Report 17567626 (Version 13)
Quarter: 2024Q4

REPORT INFORMATION
  Report Type: Report from Study
  Country: US (occurrence: US)
  Receive Date: 20200320
  Receipt Date: 20241225
  Transmission Date: 20250115
  Serious: No
  Sender: TAKEDA
  Company Number: US-SHIRE-US202010684

PATIENT
  Age: 70 Year
  Sex: Female
  Weight: 64 kg

DRUGS (18)
  1. HUMAN IMMUNOGLOBULIN G [Suspect]
     Active Substance: HUMAN IMMUNOGLOBULIN G
     Indication: Immunodeficiency common variable
     Dosage: 15 GRAM, 1/WEEK
     Dates: start: 20160512
  2. HUMAN IMMUNOGLOBULIN G [Suspect]
     Active Substance: HUMAN IMMUNOGLOBULIN G
     Dosage: 15 GRAM, 1/WEEK
     Dates: start: 20160513
  3. DIPHENHYDRAMINE [Concomitant]
     Active Substance: DIPHENHYDRAMINE
     Dosage: UNK
  4. VITAMIN D3 [Concomitant]
     Active Substance: CHOLECALCIFEROL
     Dosage: UNK
  5. EPINEPHRINE [Concomitant]
     Active Substance: EPINEPHRINE
     Dosage: UNK
  6. LIDOCAINE\PRILOCAINE [Concomitant]
     Active Substance: LIDOCAINE\PRILOCAINE
     Dosage: UNK
  7. FIORINAL [Concomitant]
     Active Substance: ASPIRIN\BUTALBITAL\CAFFEINE
     Dosage: UNK
  8. TRAMADOL HCL [Concomitant]
     Active Substance: TRAMADOL HYDROCHLORIDE
     Dosage: UNK
  9. ACETAMINOPHEN [Concomitant]
     Active Substance: ACETAMINOPHEN
     Dosage: UNK
  10. PREVACID [Concomitant]
     Active Substance: LANSOPRAZOLE
     Dosage: UNK
  11. LOPID [Concomitant]
     Active Substance: GEMFIBROZIL
     Dosage: UNK
  12. MELOXICAM [Concomitant]
     Active Substance: MELOXICAM
     Dosage: UNK
  13. VITAMIN B COMPLEX [Concomitant]
     Active Substance: CYANOCOBALAMIN\DEXPANTHENOL\NIACINAMIDE\PYRIDOXINE HYDROCHLORIDE\RIBOFLAVIN 5^-PHOSPHATE SODIUM\THIA
     Dosage: UNK
  14. RESTASIS [Concomitant]
     Active Substance: CYCLOSPORINE
     Dosage: UNK
  15. ATENOLOL [Concomitant]
     Active Substance: ATENOLOL
     Dosage: UNK
  16. FAMOTIDINE [Concomitant]
     Active Substance: FAMOTIDINE
     Dosage: UNK
  17. Lmx [Concomitant]
     Dosage: UNK
  18. DIPHENHYDRAMINE HYDROCHLORIDE [Concomitant]
     Active Substance: DIPHENHYDRAMINE HYDROCHLORIDE
     Dosage: UNK

REACTIONS (12)
  - Urinary tract infection [Unknown]
  - Weight decreased [Unknown]
  - Dysphagia [Unknown]
  - Illness [Unknown]
  - Nasopharyngitis [Unknown]
  - Product dose omission issue [Unknown]
  - Influenza [Unknown]
  - Sinusitis [Unknown]
  - Malaise [Unknown]
  - Blood pressure increased [Unknown]
  - Hypersensitivity [Unknown]
  - Infusion site pain [Unknown]

NARRATIVE: CASE EVENT DATE: 20201215
